FAERS Safety Report 8433594-X (Version None)
Quarter: 2012Q2

REPORT INFORMATION
  Report Type: 
  Country: None (occurrence: None)
  Receive Date: 20120613
  Receipt Date: 20120605
  Transmission Date: 20120825
  Serious: Yes (Disabling)
  Sender: FDA-Public Use
  Company Number: CN-ABBOTT-12P-035-0943557-00

PATIENT
  Age: 20 Year
  Sex: Female

DRUGS (2)
  1. DEPAKENE [Suspect]
     Indication: CRANIAL OPERATION
     Dosage: GASTRO-RESISTANT TABLET; DAILY
     Route: 048
     Dates: start: 20120301, end: 20120501
  2. PEPLOMYCIN [Concomitant]
     Indication: PRODUCT USED FOR UNKNOWN INDICATION
     Dates: end: 20120401

REACTIONS (3)
  - HYPOACUSIS [None]
  - DIZZINESS [None]
  - VOMITING [None]
